FAERS Safety Report 5733419-7 (Version None)
Quarter: 2008Q2

REPORT INFORMATION
  Report Type: 
  Country: None (occurrence: None)
  Receive Date: 20080509
  Receipt Date: 20080428
  Transmission Date: 20081010
  Serious: Yes (Other)
  Sender: FDA-Public Use
  Company Number: FR-ROCHE-561412

PATIENT
  Sex: Female

DRUGS (9)
  1. ROCEPHIN [Suspect]
     Indication: URINARY TRACT INFECTION
     Dosage: FORM: INJECTABLE SOLUTION. 1 DOSE DAILY
     Route: 058
     Dates: start: 20070805, end: 20070811
  2. LOVENOX [Concomitant]
     Dosage: FORM: INJECTABLE SOLUTION.
     Route: 058
  3. DAFALGAN [Concomitant]
     Dosage: DOSAGE: 8 DOSES
     Route: 048
  4. ARTANE [Concomitant]
     Dosage: DOSAGE: 1 DOSE
     Route: 048
  5. RISPERDAL [Concomitant]
     Dosage: DOSAGE: 1 DOSE
     Route: 048
  6. PRAXILENE [Concomitant]
     Dosage: DOSAGE: 2 DOSES.
     Route: 048
  7. NEURONTIN [Concomitant]
     Dosage: DOSAGE: 1 DOSE.
     Route: 048
  8. OMEPRAZOLE [Concomitant]
     Dosage: DOSAGE: 1 DOSE
     Route: 048
  9. TERCIAN [Concomitant]
     Dosage: DOSAGE: 15 DOSES.
     Route: 048

REACTIONS (1)
  - SOFT TISSUE NECROSIS [None]
